FAERS Safety Report 25425021 (Version 2)
Quarter: 2025Q4

REPORT INFORMATION
  Report Type: Report from Study
  Country: EU (occurrence: None)
  Receive Date: 20250611
  Receipt Date: 20251216
  Transmission Date: 20260117
  Serious: Yes (Hospitalization, Other)
  Sender: UCB
  Company Number: EU-UCBSA-2025034294

PATIENT

DRUGS (3)
  1. BIMEKIZUMAB [Suspect]
     Active Substance: BIMEKIZUMAB
     Indication: Psoriatic arthropathy
     Dosage: 160 MILLIGRAM, EV 4 WEEKS
  2. BIMEKIZUMAB [Suspect]
     Active Substance: BIMEKIZUMAB
     Dosage: 320 MILLIGRAM, EV 8 WEEKS
  3. ACEMETACIN [Concomitant]
     Active Substance: ACEMETACIN
     Indication: Product used for unknown indication
     Dosage: 60 MILLIGRAM, 7 DAYS PER WEEK

REACTIONS (10)
  - Cellulitis [Recovered/Resolved]
  - Surgery [Recovered/Resolved]
  - Osteoarthritis [Unknown]
  - Incorrect dose administered [Unknown]
  - Alopecia [Unknown]
  - Conjunctivitis [Unknown]
  - Fatigue [Unknown]
  - Influenza like illness [Unknown]
  - Chondropathy [Unknown]
  - Pelvic misalignment [Unknown]
